FAERS Safety Report 4794969-3 (Version None)
Quarter: 2005Q3

REPORT INFORMATION
  Report Type: 
  Country: None (occurrence: None)
  Receive Date: 20050919
  Receipt Date: 20050525
  Transmission Date: 20060218
  Serious: Yes (Other)
  Sender: FDA-Public Use
  Company Number: US-JNJFOC-20050507166

PATIENT
  Age: 25 Year
  Sex: Female

DRUGS (1)
  1. ORTHO TRI-CYCLEN LO [Suspect]
     Indication: CONTRACEPTION
     Dosage: 1 DOSE(S), 1 IN 1 DAY, ORAL
     Route: 048
     Dates: start: 20040701

REACTIONS (11)
  - ABDOMINAL PAIN UPPER [None]
  - CHEST PAIN [None]
  - COORDINATION ABNORMAL [None]
  - DIZZINESS [None]
  - DYSARTHRIA [None]
  - DYSPNOEA [None]
  - HEADACHE [None]
  - HEMIPARESIS [None]
  - HYPOAESTHESIA [None]
  - LOSS OF CONSCIOUSNESS [None]
  - VISUAL DISTURBANCE [None]
